FAERS Safety Report 12083660 (Version 1)
Quarter: 2016Q1

REPORT INFORMATION
  Report Type: Spontaneous
  Country: US (occurrence: None)
  Receive Date: 20160216
  Receipt Date: 20160216
  Transmission Date: 20160526
  Serious: No
  Sender: FDA-Public Use
  Company Number: None

PATIENT
  Age: 62 Year
  Sex: Female
  Weight: 51.5 kg

DRUGS (1)
  1. ERTAPENEM 1 GRAM [Suspect]
     Active Substance: ERTAPENEM
     Indication: URINARY TRACT INFECTION
     Dosage: 1
     Route: 042

REACTIONS (1)
  - Leukopenia [None]

NARRATIVE: CASE EVENT DATE: 20151222
